FAERS Safety Report 15256426 (Version 1)
Quarter: 2018Q3

REPORT INFORMATION
  Report Type: Spontaneous
  Country: IT (occurrence: IT)
  Receive Date: 20180808
  Receipt Date: 20180808
  Transmission Date: 20181010
  Serious: Yes (Hospitalization)
  Sender: FDA-Public Use
  Company Number: IT-MYLANLABS-2018M1060022

PATIENT
  Age: 38 Year
  Sex: Female

DRUGS (8)
  1. METOPROLOL. [Suspect]
     Active Substance: METOPROLOL
     Indication: PALPITATIONS
     Dosage: 100 MG, BID
     Route: 065
  2. ENALAPRIL [Concomitant]
     Active Substance: ENALAPRIL
     Indication: CARDIAC FAILURE ACUTE
     Dosage: 5 MG
     Route: 065
  3. FUROSEMIDE. [Concomitant]
     Active Substance: FUROSEMIDE
     Indication: CARDIAC FAILURE ACUTE
     Dosage: 25 MG
     Route: 065
  4. VINCRISTINE [Suspect]
     Active Substance: VINCRISTINE
     Indication: GANGLIONEUROBLASTOMA
     Route: 065
  5. BISOPROLOL [Suspect]
     Active Substance: BISOPROLOL
     Indication: CARDIAC FAILURE ACUTE
     Dosage: 1.25 MG, BID
     Route: 065
  6. DOXORUBICIN [Suspect]
     Active Substance: DOXORUBICIN
     Indication: GANGLIONEUROBLASTOMA
     Route: 065
  7. BISOPROLOL [Suspect]
     Active Substance: BISOPROLOL
     Indication: PALPITATIONS
     Dosage: 5 MG, QD
     Route: 065
  8. CYCLOPHOSPHAMIDE. [Suspect]
     Active Substance: CYCLOPHOSPHAMIDE
     Indication: GANGLIONEUROBLASTOMA
     Route: 065

REACTIONS (7)
  - Condition aggravated [Recovering/Resolving]
  - Drug ineffective [Unknown]
  - Left ventricular dysfunction [Recovering/Resolving]
  - Tachycardia induced cardiomyopathy [Recovering/Resolving]
  - Ventricular extrasystoles [Recovered/Resolved]
  - Cardiac failure chronic [Recovering/Resolving]
  - Cardiac failure acute [Recovering/Resolving]
